FAERS Safety Report 7920619-0 (Version None)
Quarter: 2011Q4

REPORT INFORMATION
  Report Type: 
  Country: None (occurrence: None)
  Receive Date: 20111117
  Receipt Date: 20111107
  Transmission Date: 20120403
  Serious: Yes (Death, Life-Threatening, Hospitalization)
  Sender: FDA-Public Use
  Company Number: JP-EISAI INC-E7389-01596-CLI-JP

PATIENT
  Sex: Female
  Weight: 44 kg

DRUGS (12)
  1. EPIRUBICIN HYDROCHLORIDE [Suspect]
     Indication: BREAST CANCER RECURRENT
     Route: 041
     Dates: start: 20110912
  2. ELEMENMIC [Concomitant]
  3. TPN ELECTROLYTES IN PLASTIC CONTAINER [Concomitant]
     Dates: end: 20110912
  4. NEUTROGIN [Concomitant]
     Indication: NEUTROPENIA
     Dates: start: 20110919, end: 20110920
  5. NEOPAREN NO.1 [Concomitant]
     Dates: start: 20110913
  6. LASIX [Concomitant]
  7. LECICARBON [Concomitant]
     Dates: end: 20110912
  8. PRIMPERAN TAB [Concomitant]
  9. VITAMEDIN [Concomitant]
     Route: 042
     Dates: end: 20110912
  10. KCL CORRECTIVE [Concomitant]
     Route: 042
  11. EPIRUBICIN HYDROCHLORIDE [Suspect]
     Route: 041
     Dates: start: 20111004
  12. PANTOL [Concomitant]

REACTIONS (4)
  - MALAISE [None]
  - HYPERNATRAEMIA [None]
  - NEOPLASM MALIGNANT [None]
  - FEBRILE NEUTROPENIA [None]
